FAERS Safety Report 9421403 (Version 1)
Quarter: 2013Q3

REPORT INFORMATION
  Report Type: Spontaneous
  Country: DE (occurrence: DE)
  Receive Date: 20130725
  Receipt Date: 20130725
  Transmission Date: 20140515
  Serious: Yes (Hospitalization)
  Sender: FDA-Public Use
  Company Number: GXKR2013DE002480

PATIENT
  Sex: 0

DRUGS (6)
  1. ACETYLSALICYLIC ACID [Suspect]
     Indication: CORONARY ARTERY DISEASE
     Dosage: 1 DF, QD
     Route: 048
  2. PRADAXA [Suspect]
     Indication: ATRIAL FIBRILLATION
     Dosage: 2 DF, QD
     Route: 048
     Dates: start: 20111210, end: 20130505
  3. RAMIPRIL [Concomitant]
     Indication: HYPERTENSION
     Route: 048
  4. METOPROLOL SUCCINATE [Concomitant]
     Indication: HYPERTENSION
     Route: 048
  5. TORASEMID [Concomitant]
     Route: 048
  6. ALDACTONE [Concomitant]
     Route: 048

REACTIONS (2)
  - Anaemia [Recovering/Resolving]
  - Renal failure [Recovering/Resolving]
